FAERS Safety Report 5060097-5 (Version None)
Quarter: 2006Q3

REPORT INFORMATION
  Report Type: 
  Country: None (occurrence: None)
  Receive Date: 20060719
  Receipt Date: 20060510
  Transmission Date: 20061208
  Serious: Yes (Hospitalization)
  Sender: FDA-Public Use
  Company Number: STA-AE-06-040

PATIENT
  Age: 39 Year
  Sex: Male

DRUGS (8)
  1. PYRAZINAMIDE [Suspect]
     Indication: TUBERCULOSIS
     Dosage: 1800 MG/DAY
  2. ISONIAZID [Suspect]
     Indication: TUBERCULOSIS
     Dosage: 300MG/DAY
  3. RIFAMPIN [Concomitant]
  4. STREPTOMYCIN [Concomitant]
  5. CIPROFLOXACIN [Concomitant]
  6. ETHAMBUTOL HCL [Concomitant]
  7. STREPTOMYCIN [Concomitant]
  8. TRAMADOL HCL [Concomitant]

REACTIONS (8)
  - ASCITES [None]
  - DRUG ERUPTION [None]
  - HEPATIC ATROPHY [None]
  - HEPATIC ENCEPHALOPATHY [None]
  - HEPATIC NECROSIS [None]
  - HEPATITIS [None]
  - LIVER TRANSPLANT [None]
  - RENAL FAILURE [None]
